FAERS Safety Report 4548094-7 (Version None)
Quarter: 2004Q4

REPORT INFORMATION
  Report Type: 
  Country: None (occurrence: None)
  Receive Date: 20041227
  Receipt Date: 20040928
  Transmission Date: 20050328
  Serious: No
  Sender: FDA-Public Use
  Company Number: 04P-163-0275016-00

PATIENT
  Sex: Female
  Weight: 63.5036 kg

DRUGS (5)
  1. HUMIRA [Suspect]
     Indication: RHEUMATOID ARTHRITIS
     Dosage: 40 MG, 1 IN 2 WK, ORAL
     Route: 048
     Dates: start: 20040601
  2. PREDNISONE [Concomitant]
  3. SULFASALAZINE [Concomitant]
  4. HYDROCODONE [Concomitant]
  5. LISINOPRIL [Concomitant]

REACTIONS (2)
  - ARTHRITIS [None]
  - CONDITION AGGRAVATED [None]
